FAERS Safety Report 10534729 (Version 1)
Quarter: 2014Q4

REPORT INFORMATION
  Report Type: Spontaneous
  Country: US (occurrence: US)
  Receive Date: 20141022
  Receipt Date: 20141022
  Transmission Date: 20150529
  Serious: No
  Sender: FDA-Public Use
  Company Number: US-BAXTER-2014BAX060519

PATIENT

DRUGS (1)
  1. LACTATED RINGER^S INJECTION, USP [Suspect]
     Active Substance: CALCIUM CHLORIDE\DEXTROSE MONOHYDRATE\POTASSIUM CHLORIDE\SODIUM CHLORIDE\SODIUM LACTATE
     Indication: MENISCUS OPERATION
     Route: 065
     Dates: start: 20140908, end: 20140908

REACTIONS (3)
  - Poor quality drug administered [Recovered/Resolved]
  - Thermal burn [Not Recovered/Not Resolved]
  - Wrong technique in drug usage process [Recovered/Resolved]

NARRATIVE: CASE EVENT DATE: 20140908
